FAERS Safety Report 13310422 (Version 2)
Quarter: 2017Q3

REPORT INFORMATION
  Report Type: Spontaneous
  Country: US (occurrence: US)
  Receive Date: 20170309
  Receipt Date: 20170707
  Transmission Date: 20171127
  Serious: No
  Sender: FDA-Public Use
  Company Number: US-JNJFOC-20170202640

PATIENT
  Age: 27 Year
  Sex: Male

DRUGS (12)
  1. INVEGA [Suspect]
     Active Substance: PALIPERIDONE
     Indication: POST-TRAUMATIC STRESS DISORDER
     Route: 048
  2. INVEGA [Suspect]
     Active Substance: PALIPERIDONE
     Indication: BIPOLAR DISORDER
     Route: 048
  3. INVEGA [Suspect]
     Active Substance: PALIPERIDONE
     Indication: ANXIETY
     Dosage: 3 MG TO 9 MG
     Route: 048
     Dates: start: 201103, end: 201503
  4. INVEGA [Suspect]
     Active Substance: PALIPERIDONE
     Indication: BIPOLAR DISORDER
     Dosage: 3 MG TO 9 MG
     Route: 048
     Dates: start: 201103, end: 201503
  5. INVEGA [Suspect]
     Active Substance: PALIPERIDONE
     Indication: DEPRESSION
     Route: 048
  6. INVEGA [Suspect]
     Active Substance: PALIPERIDONE
     Indication: POST-TRAUMATIC STRESS DISORDER
     Dosage: 3 MG TO 9 MG
     Route: 048
     Dates: start: 201103, end: 201503
  7. INVEGA [Suspect]
     Active Substance: PALIPERIDONE
     Indication: DEPRESSION
     Route: 048
  8. INVEGA [Suspect]
     Active Substance: PALIPERIDONE
     Indication: ANXIETY
     Route: 048
  9. INVEGA [Suspect]
     Active Substance: PALIPERIDONE
     Indication: POST-TRAUMATIC STRESS DISORDER
     Route: 048
  10. INVEGA [Suspect]
     Active Substance: PALIPERIDONE
     Indication: ANXIETY
     Route: 048
  11. INVEGA [Suspect]
     Active Substance: PALIPERIDONE
     Indication: DEPRESSION
     Dosage: 3 MG TO 9 MG
     Route: 048
     Dates: start: 201103, end: 201503
  12. INVEGA [Suspect]
     Active Substance: PALIPERIDONE
     Indication: BIPOLAR DISORDER
     Route: 048

REACTIONS (2)
  - Gynaecomastia [Recovering/Resolving]
  - Abnormal weight gain [Unknown]

NARRATIVE: CASE EVENT DATE: 201106
